FAERS Safety Report 23008481 (Version 2)
Quarter: 2024Q3

REPORT INFORMATION
  Report Type: Report from Study
  Country: FR (occurrence: FR)
  Receive Date: 20230929
  Receipt Date: 20240722
  Transmission Date: 20241017
  Serious: Yes (Hospitalization)
  Sender: NORDIC PHARMA
  Company Number: FR-JNJFOC-20230715804

PATIENT
  Age: 22 Year
  Sex: Female

DRUGS (5)
  1. METHOTREXATE [Suspect]
     Active Substance: METHOTREXATE
     Indication: Colitis ulcerative
     Route: 065
     Dates: start: 20180712, end: 20181020
  2. METHOTREXATE [Suspect]
     Active Substance: METHOTREXATE
     Indication: Colitis ulcerative
     Route: 065
     Dates: start: 20190925
  3. METHOTREXATE [Suspect]
     Active Substance: METHOTREXATE
     Indication: Colitis ulcerative
     Route: 065
     Dates: start: 20200520
  4. REMICADE [Concomitant]
     Active Substance: INFLIXIMAB
     Indication: Colitis ulcerative
     Route: 042
     Dates: start: 20170913
  5. MESALAMINE [Concomitant]
     Active Substance: MESALAMINE
     Indication: Colitis ulcerative
     Route: 065
     Dates: start: 20190710, end: 20190925

REACTIONS (5)
  - Cholelithiasis [Recovered/Resolved]
  - Spondyloarthropathy [Recovering/Resolving]
  - Colitis ulcerative [Recovering/Resolving]
  - Intestinal obstruction [Recovered/Resolved]
  - Product use in unapproved indication [Unknown]

NARRATIVE: CASE EVENT DATE: 20191208
